FAERS Safety Report 24168381 (Version 3)
Quarter: 2024Q4

REPORT INFORMATION
  Report Type: Spontaneous
  Country: US (occurrence: US)
  Receive Date: 20240802
  Receipt Date: 20241105
  Transmission Date: 20250114
  Serious: Yes (Other)
  Sender: SIMILASAN CORPORATION
  Company Number: US-SIMILASAN-2024USSIMSPO00128

PATIENT

DRUGS (1)
  1. PINK EYE (HOMEOPATHICS) [Suspect]
     Active Substance: HOMEOPATHICS
     Indication: Product used for unknown indication
     Route: 047
     Dates: start: 20230715

REACTIONS (3)
  - Cataract operation [Unknown]
  - Vision blurred [Unknown]
  - Product use issue [Unknown]
